FAERS Safety Report 6690557-2 (Version None)
Quarter: 2010Q2

REPORT INFORMATION
  Report Type: 
  Country: None (occurrence: None)
  Receive Date: 20100421
  Receipt Date: 20100420
  Transmission Date: 20101027
  Serious: Yes (Hospitalization)
  Sender: FDA-Public Use
  Company Number: A0790898A

PATIENT
  Age: 59 Year
  Sex: Male

DRUGS (6)
  1. AVANDIA [Suspect]
     Dosage: 8MG PER DAY
     Route: 048
     Dates: start: 20040801, end: 20070501
  2. METFORMIN [Concomitant]
  3. ALTACE [Concomitant]
  4. LIPITOR [Concomitant]
  5. ASPIRIN [Concomitant]
  6. VYTORIN [Concomitant]

REACTIONS (1)
  - MYOCARDIAL INFARCTION [None]
